FAERS Safety Report 10748948 (Version 4)
Quarter: 2015Q2

REPORT INFORMATION
  Report Type: Report from Study
  Country: ES (occurrence: ES)
  Receive Date: 20150129
  Receipt Date: 20150422
  Transmission Date: 20150821
  Serious: Yes (Hospitalization, Other)
  Sender: FDA-Public Use
  Company Number: ES-GILEAD-2015-0133178

PATIENT
  Age: 59 Year
  Sex: Male
  Weight: 82 kg

DRUGS (28)
  1. RITUXIMAB [Suspect]
     Active Substance: RITUXIMAB
     Dosage: 100 MG, QD
     Route: 042
     Dates: start: 20140925, end: 20140925
  2. AERIUS [Concomitant]
     Active Substance: DESLORATADINE
     Route: 048
     Dates: start: 20141216
  3. OMEPRAZOLE. [Concomitant]
     Active Substance: OMEPRAZOLE
     Route: 048
     Dates: start: 20140918
  4. BENDAMUSTINE [Suspect]
     Active Substance: BENDAMUSTINE
     Indication: CHRONIC LYMPHOCYTIC LEUKAEMIA
     Dosage: 130 MG, QD
     Route: 042
     Dates: start: 20150115, end: 20150116
  5. BENDAMUSTINE [Suspect]
     Active Substance: BENDAMUSTINE
     Dosage: 130 MG, QD
     Route: 042
     Dates: start: 20141111, end: 20141112
  6. RITUXIMAB [Suspect]
     Active Substance: RITUXIMAB
     Dosage: 950 MG, QD
     Route: 042
     Dates: start: 20141111, end: 20141111
  7. POLARAMINE [Concomitant]
     Active Substance: DEXCHLORPHENIRAMINE MALEATE
     Route: 042
     Dates: start: 20140925
  8. FUROSEMIDE. [Concomitant]
     Active Substance: FUROSEMIDE
     Route: 042
     Dates: start: 20140925
  9. RITUXIMAB [Suspect]
     Active Substance: RITUXIMAB
     Indication: CHRONIC LYMPHOCYTIC LEUKAEMIA
     Dosage: 950 MG, QD
     Route: 042
     Dates: start: 20150115, end: 20150115
  10. RITUXIMAB [Suspect]
     Active Substance: RITUXIMAB
     Dosage: 950 MG, QD
     Route: 042
     Dates: start: 20150212, end: 20150212
  11. EBASTEL [Concomitant]
     Active Substance: EBASTINE
     Route: 048
     Dates: start: 20141216
  12. PRIMPERAN [Concomitant]
     Active Substance: METOCLOPRAMIDE HYDROCHLORIDE
     Route: 042
     Dates: start: 20140925
  13. NEULASTA [Concomitant]
     Active Substance: PEGFILGRASTIM
     Indication: NEUTROPENIA
     Route: 058
     Dates: start: 20150115, end: 20150115
  14. BENDAMUSTINE [Suspect]
     Active Substance: BENDAMUSTINE
     Dosage: 130 MG, QD
     Route: 042
     Dates: start: 20150212, end: 20150213
  15. RITUXIMAB [Suspect]
     Active Substance: RITUXIMAB
     Dosage: 950 MG, QD
     Route: 042
     Dates: start: 20141211, end: 20141211
  16. BENDAMUSTINE [Suspect]
     Active Substance: BENDAMUSTINE
     Dosage: 130 MG, QD
     Route: 042
     Dates: start: 20150312, end: 20150313
  17. ONDANSETRON [Concomitant]
     Active Substance: ONDANSETRON
     Dosage: UNK
     Route: 048
     Dates: start: 20140925
  18. ONDANSETRON [Concomitant]
     Active Substance: ONDANSETRON
     Dosage: UNK
     Route: 042
     Dates: start: 20140925
  19. VASELINE                           /00473501/ [Concomitant]
     Indication: RASH
     Route: 003
     Dates: start: 20141216
  20. PARACETAMOL [Concomitant]
     Active Substance: ACETAMINOPHEN
     Route: 042
     Dates: start: 20140925
  21. BETAMETASONE [Concomitant]
     Active Substance: BETAMETHASONE
     Route: 003
     Dates: start: 20141216
  22. BENDAMUSTINE [Suspect]
     Active Substance: BENDAMUSTINE
     Dosage: 130 MG, QD
     Route: 042
     Dates: start: 20141211, end: 20141212
  23. RITUXIMAB [Suspect]
     Active Substance: RITUXIMAB
     Dosage: 600 MG, QD
     Route: 042
     Dates: start: 20140926, end: 20140926
  24. METHYLPREDNISOLONE. [Concomitant]
     Active Substance: METHYLPREDNISOLONE
     Route: 042
     Dates: start: 20140925
  25. IDELALISIB [Suspect]
     Active Substance: IDELALISIB
     Indication: CHRONIC LYMPHOCYTIC LEUKAEMIA
     Dosage: 150 MG, BID
     Route: 048
     Dates: start: 20140925
  26. BENDAMUSTINE [Suspect]
     Active Substance: BENDAMUSTINE
     Dosage: 172 MG, QD
     Route: 042
     Dates: start: 20140925, end: 20140926
  27. RITUXIMAB [Suspect]
     Active Substance: RITUXIMAB
     Dosage: 950 MG, QD
     Route: 042
     Dates: start: 20150312, end: 20150312
  28. PREDNISONE. [Concomitant]
     Active Substance: PREDNISONE
     Route: 048
     Dates: start: 20141213

REACTIONS (1)
  - Herpes simplex [Recovered/Resolved]

NARRATIVE: CASE EVENT DATE: 20150117
